FAERS Safety Report 21656497 (Version 2)
Quarter: 2024Q4

REPORT INFORMATION
  Report Type: Report from Study
  Country: US (occurrence: US)
  Receive Date: 20221129
  Receipt Date: 20241128
  Transmission Date: 20250115
  Serious: No
  Sender: NOVARTIS
  Company Number: US-002147023-NVSC2022US265470

PATIENT
  Sex: Female

DRUGS (1)
  1. ENTRESTO [Suspect]
     Active Substance: SACUBITRIL\VALSARTAN
     Indication: Paternal exposure during pregnancy
     Dosage: UNK (EXPOSURE VIA PARTNER)
     Route: 050

REACTIONS (1)
  - Paternal exposure during pregnancy [Unknown]
